FAERS Safety Report 22938392 (Version 2)
Quarter: 2023Q4

REPORT INFORMATION
  Report Type: Spontaneous
  Country: US (occurrence: US)
  Receive Date: 20230913
  Receipt Date: 20231010
  Transmission Date: 20240110
  Serious: No
  Sender: FDA-Public Use
  Company Number: US-BIOVITRUM-2023-US-013217

PATIENT
  Age: 76 Year
  Sex: Female

DRUGS (17)
  1. KINERET [Suspect]
     Active Substance: ANAKINRA
     Indication: Gout
     Dosage: 100 MG QD
     Route: 058
     Dates: end: 20230721
  2. KINERET [Suspect]
     Active Substance: ANAKINRA
     Indication: Rheumatoid arthritis
     Dates: start: 202307, end: 20230904
  3. KINERET [Suspect]
     Active Substance: ANAKINRA
     Indication: Osteoarthritis
  4. ACEBUTELOL [Concomitant]
     Indication: Product used for unknown indication
     Dosage: 400MG AT NIGHT
  5. ACEBUTELOL [Concomitant]
     Dosage: 200 MG IN THE MORNING
  6. NAPROXEN [Concomitant]
     Active Substance: NAPROXEN
     Indication: Product used for unknown indication
     Dosage: TWICE A DAY
  7. HYDROCHLOROTHIAZIDE [Concomitant]
     Active Substance: HYDROCHLOROTHIAZIDE
     Indication: Product used for unknown indication
     Dosage: DAILY
  8. TRAZODONE [Concomitant]
     Active Substance: TRAZODONE HYDROCHLORIDE
     Indication: Product used for unknown indication
     Dosage: DAILY
  9. GABAPENTIN [Concomitant]
     Active Substance: GABAPENTIN
     Indication: Product used for unknown indication
     Dosage: 300MG AT NIGHT
  10. GABAPENTIN [Concomitant]
     Active Substance: GABAPENTIN
     Dosage: 200MG DURING THE DAY
  11. DOXYCYCLINE [Concomitant]
     Active Substance: DOXYCYCLINE
     Indication: Product used for unknown indication
     Dosage: ONCE A DAY
  12. FISH OIL [Concomitant]
     Active Substance: FISH OIL
     Indication: Product used for unknown indication
  13. MAGNESIUM [Concomitant]
     Active Substance: MAGNESIUM
     Indication: Product used for unknown indication
  14. VITAMIN D [Concomitant]
     Active Substance: VITAMIN D NOS
     Indication: Product used for unknown indication
  15. SULFAZOLIZINE [Concomitant]
     Indication: Product used for unknown indication
  16. HERBALS\TURMERIC [Concomitant]
     Active Substance: HERBALS\TURMERIC
     Indication: Product used for unknown indication
  17. IMMUNOGLOBULIN [Concomitant]
     Indication: Product used for unknown indication
     Dosage: ONCE A MONTH

REACTIONS (5)
  - Injection site rash [Recovering/Resolving]
  - Injection site pruritus [Unknown]
  - Off label use [Recovered/Resolved]
  - Fungal infection [Unknown]
  - Viral infection [Unknown]

NARRATIVE: CASE EVENT DATE: 20230701
